FAERS Safety Report 23051494 (Version 1)
Quarter: 2023Q4

REPORT INFORMATION
  Report Type: Report from Study
  Country: DE (occurrence: DE)
  Receive Date: 20231010
  Receipt Date: 20231010
  Transmission Date: 20240110
  Serious: Yes (Hospitalization)
  Sender: FDA-Public Use
  Company Number: DE-ABBVIE-5441686

PATIENT
  Age: 65 Year
  Sex: Female

DRUGS (2)
  1. RINVOQ [Suspect]
     Active Substance: UPADACITINIB
     Indication: Rheumatoid arthritis
     Route: 048
     Dates: end: 20221014
  2. CIMZIA [Concomitant]
     Active Substance: CERTOLIZUMAB PEGOL
     Indication: Product used for unknown indication
     Dates: start: 20221014

REACTIONS (2)
  - Acute myocardial infarction [Recovered/Resolved]
  - Blood glucose abnormal [Not Recovered/Not Resolved]

NARRATIVE: CASE EVENT DATE: 20221108
